FAERS Safety Report 8403335-0 (Version None)
Quarter: 2012Q2

REPORT INFORMATION
  Report Type: 
  Country: None (occurrence: None)
  Receive Date: 20120601
  Receipt Date: 20120523
  Transmission Date: 20120825
  Serious: Yes (Other)
  Sender: FDA-Public Use
  Company Number: US-JNJFOC-20120519216

PATIENT
  Age: 28 Year
  Sex: Female
  Weight: 52.16 kg

DRUGS (3)
  1. LISTERINE TOTAL CARE PLUS WHITENING MOUTHWASH [Suspect]
     Indication: DENTAL CARE
     Dosage: 1/4 CAPFUL
     Route: 048
     Dates: start: 20120523
  2. A MULTIVITAMIN [Concomitant]
     Route: 065
  3. LISTERINE TOTAL CARE PLUS WHITENING MOUTHWASH [Suspect]
     Indication: DENTAL DISORDER PROPHYLAXIS
     Dosage: 1/4 CAPFUL
     Route: 048
     Dates: start: 20120523

REACTIONS (3)
  - GINGIVAL PAIN [None]
  - THERMAL BURN [None]
  - GINGIVAL DISCOLOURATION [None]
